FAERS Safety Report 9104336 (Version 3)
Quarter: 2013Q3

REPORT INFORMATION
  Report Type: Spontaneous
  Country: US (occurrence: US)
  Receive Date: 20130219
  Receipt Date: 20130830
  Transmission Date: 20140515
  Serious: No
  Sender: FDA-Public Use
  Company Number: US-BIOGENIDEC-2012BI033186

PATIENT
  Age: 8 Year
  Sex: Male

DRUGS (1)
  1. AVONEX [Suspect]
     Indication: MULTIPLE SCLEROSIS
     Route: 030
     Dates: start: 20120420

REACTIONS (7)
  - Influenza [Recovered/Resolved]
  - Fear of injection [Not Recovered/Not Resolved]
  - Influenza like illness [Recovered/Resolved]
  - Injection site pain [Recovered/Resolved with Sequelae]
  - Malaise [Recovered/Resolved]
  - Anxiety [Unknown]
  - Pain [Recovered/Resolved]
